FAERS Safety Report 11217486 (Version 1)
Quarter: 2015Q2

REPORT INFORMATION
  Report Type: Spontaneous
  Country: US (occurrence: US)
  Receive Date: 20150625
  Receipt Date: 20150625
  Transmission Date: 20150821
  Serious: Yes (Other)
  Sender: FDA-Public Use
  Company Number: PHHY2015US072623

PATIENT
  Age: 79 Year
  Sex: Female

DRUGS (1)
  1. WARFARIN [Suspect]
     Active Substance: WARFARIN
     Indication: ATRIAL FIBRILLATION
     Route: 065

REACTIONS (5)
  - Calciphylaxis [Unknown]
  - Arteriosclerosis [Unknown]
  - Calcinosis [Unknown]
  - Necrosis [Unknown]
  - Ulcer [Recovered/Resolved]
